FAERS Safety Report 21123938 (Version 1)
Quarter: 2022Q3

REPORT INFORMATION
  Report Type: Spontaneous
  Country: US (occurrence: US)
  Receive Date: 20220725
  Receipt Date: 20220725
  Transmission Date: 20221027
  Serious: Yes (Other)
  Sender: FDA-Public Use
  Company Number: US-STRIDES ARCOLAB LIMITED-2022SP003947

PATIENT
  Age: 38 Year
  Sex: Female

DRUGS (5)
  1. LETROZOLE [Suspect]
     Active Substance: LETROZOLE
     Indication: Lymphangioleiomyomatosis
     Dosage: 2.5 MILLIGRAM, PER DAY
     Route: 048
  2. LEUPROLIDE ACETATE [Suspect]
     Active Substance: LEUPROLIDE ACETATE
     Indication: Lymphangioleiomyomatosis
     Dosage: UNK
     Route: 030
  3. ULIPRISTAL ACETATE [Suspect]
     Active Substance: ULIPRISTAL ACETATE
     Indication: Lymphangioleiomyomatosis
     Dosage: 15 MILLIGRAM, PER DAY
     Route: 048
  4. BEVACIZUMAB [Concomitant]
     Active Substance: BEVACIZUMAB
     Indication: Lymphangioleiomyomatosis
     Dosage: 15 MILLIGRAM/KILOGRAM, EVERY 3 WEEKS (CYCLES)
     Route: 065
  5. BEVACIZUMAB [Concomitant]
     Active Substance: BEVACIZUMAB
     Dosage: UNK, CHANGED TO EVERY 4 WEEKS, RECEIVED FORTY CYCLES
     Route: 065

REACTIONS (2)
  - Treatment failure [Unknown]
  - Off label use [Unknown]
